FAERS Safety Report 5868835-6 (Version None)
Quarter: 2008Q3

REPORT INFORMATION
  Report Type: 
  Country: None (occurrence: None)
  Receive Date: 20080902
  Receipt Date: 20080902
  Transmission Date: 20090109
  Serious: Yes (Disabling, Other)
  Sender: FDA-Public Use
  Company Number: None

PATIENT
  Age: 47 Year
  Sex: Male
  Weight: 83.9154 kg

DRUGS (1)
  1. ALDACTONE [Suspect]
     Indication: HYPERTENSION
     Dosage: 100 MG? 1 OR 2 -NOT SURE- OROPHARINGE
     Route: 049
     Dates: start: 19990115, end: 19990815

REACTIONS (5)
  - BREAST MASS [None]
  - BREAST PAIN [None]
  - FEELING ABNORMAL [None]
  - GYNAECOMASTIA [None]
  - OROPHARYNGEAL PAIN [None]
